FAERS Safety Report 6141675-9 (Version None)
Quarter: 2009Q2

REPORT INFORMATION
  Report Type: 
  Country: None (occurrence: None)
  Receive Date: 20090402
  Receipt Date: 20090330
  Transmission Date: 20091009
  Serious: No
  Sender: FDA-Public Use
  Company Number: US-B.I. PHARMACEUTICALS,INC./RIDGEFIELD-2009-BP-04019BP

PATIENT
  Sex: Female

DRUGS (5)
  1. SPIRIVA [Suspect]
     Indication: CHRONIC OBSTRUCTIVE PULMONARY DISEASE
     Dosage: 18MCG
     Route: 055
     Dates: start: 20090317
  2. SYNTHROID [Concomitant]
     Indication: THYROID DISORDER
     Route: 048
     Dates: start: 19650101
  3. INSULIN [Concomitant]
     Indication: DIABETES MELLITUS
  4. WELLBUTRIN [Concomitant]
     Indication: DEPRESSION
     Dosage: 100MG
     Dates: start: 19990101
  5. PROTONIX [Concomitant]
     Indication: GASTRIC DISORDER
     Dosage: 40MG
     Dates: start: 20060101

REACTIONS (2)
  - BLOOD GLUCOSE INCREASED [None]
  - PHARYNGITIS STREPTOCOCCAL [None]
